FAERS Safety Report 6526265-8 (Version None)
Quarter: 2009Q4

REPORT INFORMATION
  Report Type: 
  Country: None (occurrence: None)
  Receive Date: 20091228
  Receipt Date: 20091216
  Transmission Date: 20100525
  Serious: Yes (Other)
  Sender: FDA-Public Use
  Company Number: 232957J09USA

PATIENT
  Age: 40 Year
  Sex: Male
  Weight: 67 kg

DRUGS (7)
  1. REBIF [Suspect]
     Indication: MULTIPLE SCLEROSIS
     Dosage: 44 MCG, 1 IN 2 DAYS, SUBCUTANEOUS
     Route: 058
     Dates: start: 20080908
  2. STEROIDS (CORTICOSTEROIDS) [Suspect]
  3. DEPAKOTE EXTENDED RELEASE (VALPROATE SEMISODIUM) [Concomitant]
  4. LYRICA [Concomitant]
  5. CHOLESTEROL MEDICATION (CHOLESTEROL- AND TRIGLYCERIDE REDUCERS) [Concomitant]
  6. BLOOD PRESSURE MEDICATION (ANTIHYPERTENSIVES) [Concomitant]
  7. EFFEXOR [Concomitant]

REACTIONS (1)
  - OSTEONECROSIS [None]
